FAERS Safety Report 8737613 (Version 2)
Quarter: 2012Q4

REPORT INFORMATION
  Report Type: 
  Country: US (occurrence: US)
  Receive Date: 20120822
  Receipt Date: 20120924
  Transmission Date: 20130627
  Serious: No
  Sender: FDA-Public Use
  Company Number: US-009507513-1207USA008205

PATIENT
  Age: 55 Year
  Sex: Female

DRUGS (3)
  1. AZASITE [Suspect]
     Dosage: 2 Gtt, qd
     Route: 047
     Dates: start: 20120716, end: 20120717
  2. LACRI LUBE (LANOLIN ALCOHOLS (+) MINERAL OIL (+) PETROLATUM, WHITE) [Concomitant]
     Dosage: UNK
     Dates: start: 20120716
  3. ROXITHROMYCIN [Concomitant]
     Dosage: UNK
     Dates: start: 20120709, end: 20120716

REACTIONS (4)
  - Underdose [Unknown]
  - Inappropriate schedule of drug administration [Unknown]
  - Product packaging quantity issue [Unknown]
  - No adverse event [Unknown]
